FAERS Safety Report 6344440-2 (Version None)
Quarter: 2009Q3

REPORT INFORMATION
  Report Type: 
  Country: None (occurrence: None)
  Receive Date: 20090908
  Receipt Date: 20090904
  Transmission Date: 20100115
  Serious: Yes (Death, Hospitalization, Other)
  Sender: FDA-Public Use
  Company Number: PHHY2009JP03090

PATIENT
  Sex: Male

DRUGS (8)
  1. ZOLEDRONATE T29581+ [Suspect]
     Indication: LUNG NEOPLASM MALIGNANT
     Dosage: 4 MG, QMO
     Route: 042
     Dates: start: 20071102, end: 20080318
  2. ZOLEDRONATE T29581+ [Suspect]
     Indication: METASTASES TO BONE
  3. OXYCONTIN [Concomitant]
     Dosage: 15 MG, UNK
     Route: 048
     Dates: start: 20080304
  4. OXINORM [Concomitant]
     Dosage: UNK
     Route: 048
     Dates: start: 20080304
  5. NOVAMIN [Concomitant]
     Dosage: UNK
     Route: 048
     Dates: start: 20080304
  6. TAKEPRON [Concomitant]
     Dosage: UNK
     Route: 048
     Dates: start: 20080304
  7. LOXONIN [Concomitant]
     Dosage: UNK
     Route: 048
     Dates: start: 20080304
  8. MUCOSTA [Concomitant]
     Dosage: UNK
     Route: 048
     Dates: start: 20080304

REACTIONS (5)
  - BLOOD CREATININE DECREASED [None]
  - DENTAL CARE [None]
  - MALIGNANT NEOPLASM PROGRESSION [None]
  - OSTEITIS [None]
  - PAIN [None]
